FAERS Safety Report 13285948 (Version 1)
Quarter: 2017Q1

REPORT INFORMATION
  Report Type: Spontaneous
  Country: US (occurrence: US)
  Receive Date: 20170302
  Receipt Date: 20170302
  Transmission Date: 20170428
  Serious: No
  Sender: FDA-Public Use
  Company Number: US-ALLERGAN-1000087550

PATIENT
  Age: 60 Year
  Sex: Male

DRUGS (1)
  1. VIIBRYD [Suspect]
     Active Substance: VILAZODONE HYDROCHLORIDE
     Indication: DEPRESSION
     Dosage: UNK
     Route: 048

REACTIONS (7)
  - Drug dose omission [Unknown]
  - Agitation [Recovered/Resolved]
  - Headache [Not Recovered/Not Resolved]
  - Insomnia [Not Recovered/Not Resolved]
  - Apathy [Not Recovered/Not Resolved]
  - Logorrhoea [Recovered/Resolved]
  - Asthenia [Not Recovered/Not Resolved]
